FAERS Safety Report 13548043 (Version 1)
Quarter: 2017Q2

REPORT INFORMATION
  Report Type: Report from Study
  Country: CN (occurrence: CN)
  Receive Date: 20170516
  Receipt Date: 20170516
  Transmission Date: 20170830
  Serious: Yes (Hospitalization, Other)
  Sender: FDA-Public Use
  Company Number: CN-BRISTOL-MYERS SQUIBB COMPANY-BMS-2017-042359

PATIENT
  Age: 57 Year
  Sex: Male

DRUGS (2)
  1. ACARBOSE. [Concomitant]
     Active Substance: ACARBOSE
     Indication: PRODUCT USED FOR UNKNOWN INDICATION
     Route: 048
  2. METFORMIN HYDROCHLORIDE. [Suspect]
     Active Substance: METFORMIN HYDROCHLORIDE
     Indication: HYPERGLYCAEMIA
     Route: 048

REACTIONS (12)
  - Hypertension [Unknown]
  - Hepatic steatosis [Unknown]
  - Diabetes mellitus inadequate control [Recovered/Resolved]
  - Hypertriglyceridaemia [Unknown]
  - Carotid arteriosclerosis [Unknown]
  - Carotid artery stenosis [Unknown]
  - Rectal polyp [Unknown]
  - Gastritis erosive [Unknown]
  - Hyperuricaemia [Unknown]
  - Diabetic retinopathy [Unknown]
  - Gallbladder disorder [Unknown]
  - Benign prostatic hyperplasia [Unknown]
